FAERS Safety Report 19428529 (Version 1)
Quarter: 2021Q2

REPORT INFORMATION
  Report Type: Spontaneous
  Country: US (occurrence: US)
  Receive Date: 20210617
  Receipt Date: 20210617
  Transmission Date: 20210717
  Serious: No
  Sender: FDA-Public Use
  Company Number: None

PATIENT
  Age: 78 Year
  Sex: Female
  Weight: 76.2 kg

DRUGS (11)
  1. NAPROSYN [Concomitant]
     Active Substance: NAPROXEN
  2. DEXAMETHASONE. [Concomitant]
     Active Substance: DEXAMETHASONE
  3. PERCOCET [Concomitant]
     Active Substance: ACETAMINOPHEN\OXYCODONE HYDROCHLORIDE
  4. GABAPENTIN. [Concomitant]
     Active Substance: GABAPENTIN
  5. PYCNOGENOL [Concomitant]
     Active Substance: DIETARY SUPPLEMENT
  6. LASIX [Concomitant]
     Active Substance: FUROSEMIDE
  7. MULTIVITAMIN [Concomitant]
     Active Substance: VITAMINS
  8. IBRANCE [Suspect]
     Active Substance: PALBOCICLIB
     Indication: BREAST CANCER
     Dosage: ?          OTHER FREQUENCY:DAILY X 21 DAYS;?
     Route: 048
     Dates: start: 20210607
  9. OMEPRAZOLE. [Concomitant]
     Active Substance: OMEPRAZOLE
  10. FISH OIL [Concomitant]
     Active Substance: FISH OIL
  11. VITAMIN D3 [Concomitant]
     Active Substance: CHOLECALCIFEROL

REACTIONS (10)
  - Micturition urgency [None]
  - Decreased appetite [None]
  - Fatigue [None]
  - Alopecia [None]
  - Headache [None]
  - Abdominal pain upper [None]
  - Nausea [None]
  - Fluid retention [None]
  - Choking sensation [None]
  - Dry mouth [None]

NARRATIVE: CASE EVENT DATE: 20210617
